FAERS Safety Report 16840293 (Version 1)
Quarter: 2019Q3

REPORT INFORMATION
  Report Type: Report from Study
  Country: CO (occurrence: CO)
  Receive Date: 20190923
  Receipt Date: 20190923
  Transmission Date: 20191005
  Serious: Yes (Other)
  Sender: FDA-Public Use
  Company Number: CO-REGENERON PHARMACEUTICALS, INC.-2019-53843

PATIENT

DRUGS (1)
  1. EYLEA [Suspect]
     Active Substance: AFLIBERCEPT
     Indication: RETINAL VEIN OCCLUSION
     Dosage: 2 MG, Q1MON, UNKNOWN NUMBER OF INJECTIONS
     Route: 031
     Dates: start: 20190608

REACTIONS (1)
  - Corneal transplant [Not Recovered/Not Resolved]

NARRATIVE: CASE EVENT DATE: 20190902
